FAERS Safety Report 9142790 (Version 1)
Quarter: 2013Q1

REPORT INFORMATION
  Report Type: Spontaneous
  Country: FR (occurrence: FR)
  Receive Date: 20130306
  Receipt Date: 20130306
  Transmission Date: 20140127
  Serious: Yes (Hospitalization, Other)
  Sender: FDA-Public Use
  Company Number: FR-ELI_LILLY_AND_COMPANY-FR201302008745

PATIENT
  Age: 62 Year
  Sex: Male

DRUGS (6)
  1. CIALIS [Suspect]
     Indication: ERECTILE DYSFUNCTION
     Dosage: 5 MG, QD
     Route: 048
     Dates: start: 20110113, end: 20110120
  2. CONTRAMAL [Concomitant]
     Indication: ARTHRALGIA
     Dosage: 1 DF, PRN
     Route: 048
     Dates: start: 201101
  3. TETRAZEPAM [Concomitant]
     Indication: MYALGIA
     Dosage: 1 DF, PRN
     Route: 048
  4. LERCAN [Concomitant]
     Dosage: 10 MG, EACH MORNING
  5. CO-RENITEC [Concomitant]
     Dosage: 10 MG, EACH MORNING
     Route: 048
  6. TAHOR [Concomitant]
     Dosage: 10 MG, EACH MORNING

REACTIONS (3)
  - Erythema multiforme [Unknown]
  - Lip oedema [Unknown]
  - Dysphagia [Unknown]
